FAERS Safety Report 15180608 (Version 1)
Quarter: 2018Q3

REPORT INFORMATION
  Report Type: Spontaneous
  Country: DK (occurrence: DK)
  Receive Date: 20180723
  Receipt Date: 20180723
  Transmission Date: 20181010
  Serious: Yes (Hospitalization)
  Sender: FDA-Public Use
  Company Number: DK-TEVA-2018-DK-928038

PATIENT
  Age: 83 Year
  Sex: Female
  Weight: 80 kg

DRUGS (11)
  1. METFORMIN ^ACTAVIS^ [Suspect]
     Active Substance: METFORMIN HYDROCHLORIDE
     Indication: TYPE 2 DIABETES MELLITUS
     Dosage: 1000 MILLIGRAM DAILY; STRENGTH: 500 MG
     Route: 048
     Dates: start: 20150707, end: 20180502
  2. SIMVASTATIN ^ACTAVIS^ [Concomitant]
     Active Substance: SIMVASTATIN
     Indication: HYPERCHOLESTEROLAEMIA
     Dosage: 20 MILLIGRAM DAILY; STRENGTH: 20 MG.
     Route: 048
     Dates: start: 20170125
  3. LOSARTANKALIUM/HYDROCHLORTHIAZID ^TEVA^ [Concomitant]
     Active Substance: HYDROCHLOROTHIAZIDE\LOSARTAN POTASSIUM
     Indication: HYPERTENSION
     Dosage: 1 DOSAGE FORMS DAILY;  STRENGTH: 100+12,5 MG.
     Route: 048
     Dates: start: 20161012
  4. ELTROXIN [Concomitant]
     Active Substance: LEVOTHYROXINE
     Indication: HYPOTHYROIDISM
     Dosage: 50 MILLIGRAM DAILY; STRENGTH: 50 MG.
     Route: 048
     Dates: start: 20150512
  5. KALIUMKLORID [Concomitant]
     Indication: PRODUCT USED FOR UNKNOWN INDICATION
     Route: 065
  6. HYDROCORTISONE. [Concomitant]
     Active Substance: HYDROCORTISONE
     Indication: SKIN DISORDER
     Dosage: STRENGTH: 20 + 10 MG/G?DOSE: 1 APPLICATION TWICE DAILY.
     Route: 003
     Dates: start: 20170919
  7. VAGIFEM [Concomitant]
     Active Substance: ESTRADIOL
     Indication: HORMONE THERAPY
     Dosage: STRENGTH: 10 MICROGRAMS.
     Route: 067
     Dates: start: 20150923
  8. PREGABALIN ^ACCORD^ [Concomitant]
     Indication: POLYNEUROPATHY
     Dosage: DOSE: 2 CAPSULES MORNING AND 1 AFTERNOON.?STRENGTH: 75 MG.
     Route: 048
     Dates: start: 20161115
  9. ACETYLSALICYLSYRE ^TEVA^ [Concomitant]
     Active Substance: ASPIRIN
     Indication: THROMBOSIS PROPHYLAXIS
     Dosage: 75 MILLIGRAM DAILY; STRENGTH: 75 MG.
     Route: 048
     Dates: start: 20170316
  10. PARACETAMOL ^B. BRAUN^ [Concomitant]
     Indication: POLYNEUROPATHY
     Dosage: 1000 MILLIGRAM DAILY; DOSE: TO NIGHT.?STRENGTH: 500 MG.
     Route: 048
     Dates: start: 20180326
  11. FUROSEMID ^ACCORD^ [Concomitant]
     Indication: DEHYDRATION
     Route: 065
     Dates: start: 20180501

REACTIONS (2)
  - Dehydration [Recovering/Resolving]
  - Nephropathy [Recovering/Resolving]

NARRATIVE: CASE EVENT DATE: 201804
